FAERS Safety Report 9712136 (Version 3)
Quarter: 2014Q1

REPORT INFORMATION
  Report Type: Spontaneous
  Country: US (occurrence: None)
  Receive Date: 20131122
  Receipt Date: 20140224
  Transmission Date: 20141002
  Serious: Yes (Death, Hospitalization)
  Sender: FDA-Public Use
  Company Number: 152146

PATIENT
  Age: 58 Year
  Sex: Female

DRUGS (1)
  1. CYTARABINE [Suspect]
     Indication: ACUTE MYELOID LEUKAEMIA
     Dates: start: 20131008

REACTIONS (6)
  - Pneumonia [None]
  - Mucosal inflammation [None]
  - Enterococcal bacteraemia [None]
  - Bronchopulmonary aspergillosis [None]
  - Bacteraemia [None]
  - Febrile neutropenia [None]
